FAERS Safety Report 13227145 (Version 1)
Quarter: 2017Q1

REPORT INFORMATION
  Report Type: Spontaneous
  Country: ES (occurrence: ES)
  Receive Date: 20170213
  Receipt Date: 20170213
  Transmission Date: 20170428
  Serious: Yes (Other)
  Sender: FDA-Public Use
  Company Number: ES-HORIZON-PRE-0047-2017

PATIENT
  Age: 15 Year
  Sex: Female

DRUGS (4)
  1. CYCLOSPORINE. [Concomitant]
     Active Substance: CYCLOSPORINE
     Indication: IMMUNOSUPPRESSANT DRUG THERAPY
     Dosage: 10 MG/ 12 H
  2. DEXAMETHASONE(1MG/ML)-TOBRAMYCIN(3MG/ML) [Concomitant]
     Route: 061
  3. CIPROFLAXIN (3MG/ML) [Concomitant]
  4. PREDNISONE. [Suspect]
     Active Substance: PREDNISONE
     Indication: IMMUNOSUPPRESSANT DRUG THERAPY
     Dosage: 60 MG / 24 H
     Route: 048

REACTIONS (2)
  - Overdose [Unknown]
  - Post procedural complication [Recovered/Resolved]
